FAERS Safety Report 9757784 (Version 2)
Quarter: 2014Q1

REPORT INFORMATION
  Report Type: Spontaneous
  Country: BR (occurrence: BR)
  Receive Date: 20131216
  Receipt Date: 20140108
  Transmission Date: 20141002
  Serious: No
  Sender: FDA-Public Use
  Company Number: BR-ROCHE-1314475

PATIENT
  Sex: Male
  Weight: 75 kg

DRUGS (10)
  1. PROLOPA [Suspect]
     Indication: PARKINSON^S DISEASE
     Dosage: 4 TABLETS OF PROLOPA 250 MG EACH 6 HOURS
     Route: 048
     Dates: start: 2010
  2. PROLOPA [Suspect]
     Dosage: 2 TABLETS OF PROLOPA HBS AT 10 P.M.
     Route: 048
     Dates: start: 2010
  3. RIVOTRIL [Suspect]
     Indication: PRODUCT USED FOR UNKNOWN INDICATION
     Dosage: 1/4 OF TABLET OF RIVOTRIL 2.5 MG A DAY
     Route: 065
     Dates: start: 2005
  4. MIOSAN [Suspect]
     Indication: MUSCLE SPASMS
     Route: 065
  5. SIFROL [Suspect]
     Indication: PRODUCT USED FOR UNKNOWN INDICATION
     Route: 065
  6. PHYTOCAL [Concomitant]
     Route: 065
     Dates: start: 2005
  7. SINVASCOR [Concomitant]
     Route: 065
     Dates: start: 2005
  8. DIOVAN [Concomitant]
     Indication: HYPERTENSION
     Dosage: 160/5 DOSE
     Route: 065
     Dates: start: 2005
  9. ATENOLOL [Concomitant]
     Indication: HYPERTENSION
     Route: 065
     Dates: start: 2005
  10. BUFFERIN (BRAZIL) [Concomitant]
     Indication: CARDIAC DISORDER
     Route: 065
     Dates: start: 2005

REACTIONS (5)
  - Nuchal rigidity [Recovered/Resolved]
  - Chromaturia [Recovering/Resolving]
  - Drug dependence [Unknown]
  - Dyspnoea [Recovered/Resolved]
  - Muscle spasms [Not Recovered/Not Resolved]
